FAERS Safety Report 20784997 (Version 1)
Quarter: 2022Q2

REPORT INFORMATION
  Report Type: Spontaneous
  Country: US (occurrence: None)
  Receive Date: 20220503
  Receipt Date: 20220503
  Transmission Date: 20220721
  Serious: Yes (Death)
  Sender: FDA-Public Use
  Company Number: None

PATIENT
  Age: 34 Year
  Sex: Male

DRUGS (9)
  1. MAVYRET [Suspect]
     Active Substance: GLECAPREVIR\PIBRENTASVIR
     Indication: Hepatitis C
     Dosage: FREQUENCY : DAILY;?
     Route: 048
     Dates: start: 20220324
  2. GABAPENTIN [Concomitant]
     Active Substance: GABAPENTIN
  3. CLONIDINE [Concomitant]
  4. QUETIAPINE [Concomitant]
     Active Substance: QUETIAPINE
  5. IMIQUIMOD [Concomitant]
     Active Substance: IMIQUIMOD
  6. ATOMOXETINE [Concomitant]
     Active Substance: ATOMOXETINE
  7. CETIRIZINE [Concomitant]
     Active Substance: CETIRIZINE HYDROCHLORIDE
  8. MONTELUKAST [Concomitant]
     Active Substance: MONTELUKAST SODIUM
  9. PANTOPRAZOLE [Concomitant]
     Active Substance: PANTOPRAZOLE

REACTIONS (1)
  - Death [None]
